FAERS Safety Report 12996550 (Version 3)
Quarter: 2017Q1

REPORT INFORMATION
  Report Type: Spontaneous
  Country: JP (occurrence: JP)
  Receive Date: 20161204
  Receipt Date: 20170303
  Transmission Date: 20170428
  Serious: Yes (Life-Threatening, Other)
  Sender: FDA-Public Use
  Company Number: JP-GLAXOSMITHKLINE-JP2016JPN175730

PATIENT
  Age: 30 Year
  Sex: Female
  Weight: 46 kg

DRUGS (20)
  1. BAYASPIRIN [Concomitant]
     Active Substance: ASPIRIN
     Dosage: UNK UNK, 1D
     Dates: start: 20160805, end: 20160912
  2. BAYASPIRIN [Concomitant]
     Active Substance: ASPIRIN
     Dosage: UNK UNK, 1D
     Dates: start: 20160921, end: 20160927
  3. NEXIUM [Concomitant]
     Active Substance: ESOMEPRAZOLE MAGNESIUM
     Dosage: UNK
     Dates: start: 20160928, end: 20160929
  4. AMLODIPINE [Concomitant]
     Active Substance: AMLODIPINE BESYLATE
     Dosage: UNK
     Dates: start: 20160919, end: 20160929
  5. LAMICTAL [Suspect]
     Active Substance: LAMOTRIGINE
     Indication: EPILEPSY
     Dosage: 25 MG, QD
     Route: 048
     Dates: start: 20160927, end: 20160929
  6. PLETAAL OD [Concomitant]
     Active Substance: CILOSTAZOL
     Dosage: UNK
     Dates: start: 20160928
  7. LANSOPRAZOLE-OD TABLETS [Concomitant]
     Dosage: UNK
     Dates: start: 20160917, end: 20160927
  8. CARBOCISTEINE TABLETS [Suspect]
     Active Substance: CARBOCYSTEINE
     Indication: PRODUCTIVE COUGH
     Dosage: 500 MG, TID
     Route: 048
     Dates: start: 20160922, end: 20160926
  9. BIOFERMIN-R POWDER [Concomitant]
     Dosage: UNK
     Dates: start: 20160917, end: 20160926
  10. INDOMETACIN [Concomitant]
     Active Substance: INDOMETHACIN
     Dosage: UNK
     Dates: start: 20160923, end: 20160923
  11. FOSPHENYTOIN [Concomitant]
     Active Substance: FOSPHENYTOIN\FOSPHENYTOIN SODIUM
     Dosage: UNK
     Dates: start: 20160909, end: 20160911
  12. SULBACILLIN [Concomitant]
     Active Substance: AMPICILLIN SODIUM\SULBACTAM SODIUM
     Dosage: UNK
     Dates: start: 20160913, end: 20160923
  13. FOSPHENYTOIN [Concomitant]
     Active Substance: FOSPHENYTOIN\FOSPHENYTOIN SODIUM
     Dosage: UNK
     Dates: start: 20160923, end: 20160923
  14. LOXOPROFEN SODIUM HYDRATE [Concomitant]
     Active Substance: LOXOPROFEN SODIUM DIHYDRATE
     Indication: PYREXIA
     Dosage: 60 MG, QD
     Dates: start: 20160921, end: 20160922
  15. LOXOPROFEN SODIUM HYDRATE [Concomitant]
     Active Substance: LOXOPROFEN SODIUM DIHYDRATE
     Indication: PAIN
     Dosage: 60 MG, BID
     Dates: start: 20160925, end: 20160926
  16. GLYCEREB [Concomitant]
     Dosage: UNK
     Dates: start: 20160921, end: 20160928
  17. E KEPPRA [Suspect]
     Active Substance: LEVETIRACETAM
     Indication: EPILEPSY
     Dosage: 500 MG, BID
     Route: 048
     Dates: start: 20160923, end: 20160926
  18. LAMICTAL [Suspect]
     Active Substance: LAMOTRIGINE
     Indication: MUSCLE SPASMS
  19. E KEPPRA [Suspect]
     Active Substance: LEVETIRACETAM
     Indication: MUSCLE SPASMS
  20. NICARDIPINE HYDROCHLORIDE. [Concomitant]
     Active Substance: NICARDIPINE HYDROCHLORIDE
     Dosage: UNK
     Dates: start: 20160921, end: 20160926

REACTIONS (19)
  - Toxic epidermal necrolysis [Recovering/Resolving]
  - Vulval haemorrhage [Recovering/Resolving]
  - Vulval disorder [Recovering/Resolving]
  - Generalised erythema [Recovering/Resolving]
  - Eye discharge [Recovering/Resolving]
  - Lip erosion [Recovering/Resolving]
  - Erythema multiforme [Recovering/Resolving]
  - Ocular hyperaemia [Recovering/Resolving]
  - Blister [Recovering/Resolving]
  - Skin erosion [Recovering/Resolving]
  - Conjunctival hyperaemia [Recovering/Resolving]
  - Lip swelling [Recovering/Resolving]
  - Dermatitis bullous [Recovering/Resolving]
  - Pyrexia [Recovering/Resolving]
  - Gingival erosion [Recovering/Resolving]
  - Oral mucosa erosion [Recovering/Resolving]
  - Erythema of eyelid [Recovering/Resolving]
  - Scab [Recovering/Resolving]
  - Visual impairment [Recovering/Resolving]

NARRATIVE: CASE EVENT DATE: 201609
